FAERS Safety Report 11086800 (Version 3)
Quarter: 2015Q2

REPORT INFORMATION
  Report Type: Spontaneous
  Country: US (occurrence: US)
  Receive Date: 20150504
  Receipt Date: 20150518
  Transmission Date: 20150821
  Serious: Yes (Other)
  Sender: FDA-Public Use
  Company Number: US-MERCK-1504USA023542

PATIENT
  Age: 41 Year
  Sex: Female

DRUGS (1)
  1. BELSOMRA [Suspect]
     Active Substance: SUVOREXANT
     Indication: INSOMNIA
     Dosage: 15 MG, 1 AT NIGHT
     Route: 048
     Dates: start: 20150427

REACTIONS (4)
  - Seizure [Unknown]
  - Abdominal pain upper [Unknown]
  - Tremor [Unknown]
  - Feeling drunk [Unknown]

NARRATIVE: CASE EVENT DATE: 20150427
